FAERS Safety Report 16818962 (Version 1)
Quarter: 2019Q3

REPORT INFORMATION
  Report Type: Spontaneous
  Country: DK (occurrence: DK)
  Receive Date: 20190917
  Receipt Date: 20190917
  Transmission Date: 20191005
  Serious: Yes (Other)
  Sender: FDA-Public Use
  Company Number: DK-FRESENIUS KABI-FK201910172

PATIENT
  Age: 12 Week
  Sex: Male

DRUGS (7)
  1. METHYLPREDNISOLONE (MANUFACTURER UNKNOWN) [Suspect]
     Active Substance: METHYLPREDNISOLONE
     Indication: KAWASAKI^S DISEASE
     Route: 065
  2. METHYLPREDNISOLONE (MANUFACTURER UNKNOWN) [Suspect]
     Active Substance: METHYLPREDNISOLONE
     Dosage: DOSE REDUCTION
     Route: 065
  3. ANAKINRA [Concomitant]
     Active Substance: ANAKINRA
     Indication: KAWASAKI^S DISEASE
     Dosage: DAY 18
     Route: 058
  4. ANAKINRA [Concomitant]
     Active Substance: ANAKINRA
     Dosage: STARTED ON DAY 19 AND TAPERED TOTALLY OVER 6 MONTHS POST-DISCHARGE
     Route: 058
  5. ACETYLSALICYLIC ACID [Concomitant]
     Active Substance: ASPIRIN
     Dosage: POST-DISCHARGE
     Route: 065
  6. ACETYLSALICYLIC ACID [Concomitant]
     Active Substance: ASPIRIN
     Indication: KAWASAKI^S DISEASE
     Route: 065
  7. PREDNISOLONE. [Suspect]
     Active Substance: PREDNISOLONE
     Indication: KAWASAKI^S DISEASE
     Dosage: TAPERED OVER SIX MONTHS POST-DISCHARGE
     Route: 048

REACTIONS (3)
  - Platelet count increased [Recovered/Resolved]
  - Leukocytosis [Recovered/Resolved]
  - Hypertension [Recovered/Resolved]
